FAERS Safety Report 8041081-6 (Version None)
Quarter: 2012Q1

REPORT INFORMATION
  Report Type: 
  Country: None (occurrence: None)
  Receive Date: 20120112
  Receipt Date: 20120105
  Transmission Date: 20120608
  Serious: Yes (Hospitalization, Other)
  Sender: FDA-Public Use
  Company Number: US-CELGENEUS-163-21880-09042282

PATIENT
  Sex: Male

DRUGS (6)
  1. REVLIMID [Suspect]
     Dosage: 10 MILLIGRAM
     Route: 048
     Dates: start: 20090217, end: 20090303
  2. PROPRANOLOL [Concomitant]
     Route: 065
  3. ZOFRAN [Concomitant]
     Route: 065
  4. MILK OF MAGNESIA TAB [Concomitant]
     Route: 065
  5. COMPAZINE [Concomitant]
     Route: 065
  6. COLACE [Concomitant]
     Route: 065

REACTIONS (3)
  - THROMBOCYTOPENIA [None]
  - ANAEMIA [None]
  - CARDIAC FAILURE CONGESTIVE [None]
